FAERS Safety Report 10314225 (Version 1)
Quarter: 2014Q3

REPORT INFORMATION
  Report Type: Spontaneous
  Country: US (occurrence: US)
  Receive Date: 20140718
  Receipt Date: 20140718
  Transmission Date: 20150326
  Serious: Yes (Hospitalization)
  Sender: FDA-Public Use
  Company Number: US-FRI-1000069079

PATIENT
  Sex: Female
  Weight: 72.56 kg

DRUGS (1)
  1. SAPHRIS [Suspect]
     Active Substance: ASENAPINE MALEATE
     Indication: BIPOLAR DISORDER
     Dosage: 1/2 TABLET AT BEDTIME
     Route: 048
     Dates: start: 20111220, end: 20111220

REACTIONS (5)
  - Amnesia [Unknown]
  - Dyspnoea [Unknown]
  - Headache [Unknown]
  - Crying [Unknown]
  - Mood altered [Unknown]

NARRATIVE: CASE EVENT DATE: 20111221
